FAERS Safety Report 7110294-X (Version None)
Quarter: 2010Q4

REPORT INFORMATION
  Report Type: 
  Country: None (occurrence: None)
  Receive Date: 20101118
  Receipt Date: 20101116
  Transmission Date: 20110411
  Serious: Yes (Death)
  Sender: FDA-Public Use
  Company Number: US-JNJFOC-20080303654

PATIENT
  Sex: Male

DRUGS (18)
  1. PROPULSID [Suspect]
     Indication: DIABETIC GASTROPARESIS
     Route: 048
  2. ASPIRIN [Concomitant]
     Route: 065
  3. HYDROCODONE [Concomitant]
     Dosage: 10/ 325 UPTO 8 PILLS PER DAY
     Route: 065
  4. PROGRAF [Concomitant]
     Route: 065
  5. PREDNISONE [Concomitant]
     Route: 065
  6. TOPROL-XL [Concomitant]
     Route: 065
  7. NORVASC [Concomitant]
     Route: 065
  8. LISINOPRIL [Concomitant]
     Route: 065
  9. LASIX [Concomitant]
     Route: 065
  10. MONOXIDIL [Concomitant]
     Route: 065
  11. LANTUS [Concomitant]
     Route: 065
  12. HUMALOG [Concomitant]
     Route: 065
  13. CLONIDINE [Concomitant]
     Route: 048
  14. NIFEDICAL [Concomitant]
     Route: 048
  15. FUROSEMIDE [Concomitant]
     Route: 048
  16. COZAAR [Concomitant]
     Route: 048
  17. LEXAPRO [Concomitant]
     Route: 048
  18. CILOSTAZOL [Concomitant]
     Route: 048

REACTIONS (1)
  - DEATH [None]
